FAERS Safety Report 19583172 (Version 6)
Quarter: 2022Q3

REPORT INFORMATION
  Report Type: Report from Study
  Country: AT (occurrence: AT)
  Receive Date: 20210719
  Receipt Date: 20220921
  Transmission Date: 20221027
  Serious: Yes (Hospitalization, Other)
  Sender: FDA-Public Use
  Company Number: AT-CELLTRION INC.-2021AT009531

PATIENT

DRUGS (48)
  1. TRASTUZUMAB [Suspect]
     Active Substance: TRASTUZUMAB
     Indication: Breast cancer metastatic
     Dosage: 354 MG, EVERY 3 WEEKS
     Route: 041
     Dates: start: 20160629, end: 20180621
  2. TRASTUZUMAB [Suspect]
     Active Substance: TRASTUZUMAB
     Indication: Breast cancer
     Dosage: 372 MG, EVERY 4 WEEKS
     Route: 041
     Dates: start: 20180719, end: 20200227
  3. TRASTUZUMAB [Suspect]
     Active Substance: TRASTUZUMAB
     Indication: HER2 positive breast cancer
     Dosage: 372 MG, EVERY 3 WEEKS
     Route: 041
     Dates: start: 20200227, end: 20200320
  4. TRASTUZUMAB [Suspect]
     Active Substance: TRASTUZUMAB
     Dosage: 372 MG, EVERY 3 WEEKS
     Route: 041
     Dates: start: 20200227, end: 20200520
  5. PERTUZUMAB [Suspect]
     Active Substance: PERTUZUMAB
     Indication: Breast cancer metastatic
     Dosage: 420 MG, EVERY 3 WEEKS
     Route: 042
     Dates: start: 20160629, end: 20180621
  6. PERTUZUMAB [Suspect]
     Active Substance: PERTUZUMAB
     Indication: Breast cancer
     Dosage: 420 MG, EVERY 4 WEEKS
     Route: 042
     Dates: start: 20180719, end: 20200227
  7. PERTUZUMAB [Suspect]
     Active Substance: PERTUZUMAB
     Indication: HER2 positive breast cancer
     Dosage: 420 MG, EVERY 3 WEEKS
     Route: 042
     Dates: start: 20200227, end: 20200320
  8. PERTUZUMAB [Suspect]
     Active Substance: PERTUZUMAB
     Dosage: 420 MG, EVERY 3 WEEKS, MOST RECENT DOSE PRIOR TO AE 20/MAR/2020
     Route: 042
     Dates: start: 20200227, end: 20200320
  9. FULVESTRANT [Suspect]
     Active Substance: FULVESTRANT
     Indication: HER2 positive breast cancer
     Dosage: 500 MG, EVERY 4 WEEKS
     Route: 058
     Dates: start: 20200716
  10. FULVESTRANT [Suspect]
     Active Substance: FULVESTRANT
     Dosage: 500 MG, EVERY 4 WEEKS
     Route: 058
     Dates: start: 20200716, end: 202110
  11. FULVESTRANT [Suspect]
     Active Substance: FULVESTRANT
     Dosage: 500 MG, EVERY 4 WEEKS, MOST RECENT DOSE PRIOR TO AE /OCT/2021
     Route: 030
     Dates: start: 20200716
  12. DOCETAXEL [Suspect]
     Active Substance: DOCETAXEL
     Indication: HER2 positive breast cancer
     Dosage: 75 MG, EVERY 3 WEEKS (RECENT DOSE ON 13/OCT/2016)
     Route: 042
     Dates: start: 20160629, end: 20161013
  13. LETROZOLE [Suspect]
     Active Substance: LETROZOLE
     Indication: HER2 positive breast cancer
     Dosage: 2.5 MG, DAILY
     Route: 048
     Dates: start: 20161021, end: 20200629
  14. DENOSUMAB [Suspect]
     Active Substance: DENOSUMAB
     Indication: HER2 positive breast cancer
     Dosage: 120 MG, EVERY 4 WEEKS
     Route: 058
     Dates: start: 20161121, end: 20210126
  15. DENOSUMAB [Suspect]
     Active Substance: DENOSUMAB
     Dosage: 120 MG, EVERY 4 WEEKS
     Route: 058
     Dates: start: 20161121
  16. DENOSUMAB [Suspect]
     Active Substance: DENOSUMAB
     Dosage: 120 MG, EVERY 4 WEEKS
     Route: 058
     Dates: start: 20161121, end: 202101
  17. RIBOCICLIB [Suspect]
     Active Substance: RIBOCICLIB
     Indication: HER2 positive breast cancer
     Dosage: 600 MG
     Route: 048
     Dates: start: 20200716, end: 20200814
  18. RIBOCICLIB [Suspect]
     Active Substance: RIBOCICLIB
     Dosage: 400 MG
     Route: 048
     Dates: start: 20201024
  19. RIBOCICLIB [Suspect]
     Active Substance: RIBOCICLIB
     Dosage: 400 MG
     Route: 048
     Dates: start: 20200824, end: 20201118
  20. PALBOCICLIB [Suspect]
     Active Substance: PALBOCICLIB
     Indication: HER2 positive breast cancer
     Dosage: 100 MG, Q4WEEKS
     Route: 048
     Dates: start: 202011, end: 202012
  21. PALBOCICLIB [Suspect]
     Active Substance: PALBOCICLIB
     Dosage: 75 MG EVERY 4 WEEKS OTHER D1-D21
     Route: 048
     Dates: start: 202012, end: 202110
  22. BETAISODONA [Concomitant]
     Active Substance: POVIDONE-IODINE
     Indication: Paronychia
     Dosage: UNK
     Route: 061
     Dates: start: 20201111
  23. BETAISODONA [Concomitant]
     Active Substance: POVIDONE-IODINE
     Dosage: ONGOING = CHECKED
     Dates: start: 20201111
  24. BETAMETHASONE DIPROPIONATE [Concomitant]
     Active Substance: BETAMETHASONE DIPROPIONATE
     Indication: Rash
     Dosage: UNK, EVERY 0.5 DAY
     Route: 061
     Dates: start: 20180121
  25. BETAMETHASONE DIPROPIONATE [Concomitant]
     Active Substance: BETAMETHASONE DIPROPIONATE
     Dosage: ONGOING = CHECKED
     Dates: start: 20180621
  26. LISINOPRIL [Concomitant]
     Active Substance: LISINOPRIL
     Dosage: UNK
     Route: 048
     Dates: start: 20170115
  27. LISINOPRIL [Concomitant]
     Active Substance: LISINOPRIL
     Dosage: ONGOING = CHECKED
     Dates: start: 20170115
  28. LISINOPRIL [Concomitant]
     Active Substance: LISINOPRIL
     Dosage: UNK
     Route: 048
     Dates: start: 201701, end: 202109
  29. EUTHYROX [Concomitant]
     Active Substance: LEVOTHYROXINE SODIUM
     Dosage: 100 UG
     Route: 048
     Dates: end: 20210222
  30. EUTHYROX [Concomitant]
     Active Substance: LEVOTHYROXINE SODIUM
     Dosage: 75 MG, DAILY
     Route: 048
     Dates: start: 20210223
  31. ATORVASTATIN [Concomitant]
     Active Substance: ATORVASTATIN
     Indication: Hypercholesterolaemia
     Dosage: 20 MG
     Route: 048
     Dates: start: 201701, end: 201701
  32. METHYLPREDNISOLONE ACEPONATE [Concomitant]
     Active Substance: METHYLPREDNISOLONE ACEPONATE
     Indication: Palmar-plantar erythrodysaesthesia syndrome
     Dosage: UNK
     Route: 061
     Dates: start: 20201111
  33. METHYLPREDNISOLONE ACEPONATE [Concomitant]
     Active Substance: METHYLPREDNISOLONE ACEPONATE
     Dosage: ONGOING = CHECKED
     Dates: start: 20201111
  34. NEBIVOLOL HYDROCHLORIDE [Concomitant]
     Active Substance: NEBIVOLOL HYDROCHLORIDE
     Dosage: UNK
     Route: 048
     Dates: start: 201701
  35. NEBIVOLOL HYDROCHLORIDE [Concomitant]
     Active Substance: NEBIVOLOL HYDROCHLORIDE
     Dosage: ONGOING = CHECKED
     Dates: start: 20170115
  36. NEBIVOLOL HYDROCHLORIDE [Concomitant]
     Active Substance: NEBIVOLOL HYDROCHLORIDE
     Dosage: UNK
     Route: 048
     Dates: start: 20170115
  37. ASPIRIN [Concomitant]
     Active Substance: ASPIRIN
     Dosage: ONGOING = CHECKED
     Dates: start: 20170115
  38. ASPIRIN [Concomitant]
     Active Substance: ASPIRIN
     Dosage: UNK
     Dates: start: 20170115
  39. ASPIRIN [Concomitant]
     Active Substance: ASPIRIN
     Dosage: UNK
     Route: 048
     Dates: start: 201701
  40. PANTOPRAZOLE SODIUM [Concomitant]
     Active Substance: PANTOPRAZOLE SODIUM
     Indication: Gastritis
     Dosage: UNK
     Route: 048
     Dates: start: 202111, end: 20211115
  41. XGEVA [Concomitant]
     Active Substance: DENOSUMAB
     Indication: Hypercalcaemia
     Dosage: UNK
     Route: 058
     Dates: start: 202109
  42. XGEVA [Concomitant]
     Active Substance: DENOSUMAB
     Dosage: 120 MG
     Dates: start: 202109
  43. SODIUM CHLORIDE [Concomitant]
     Active Substance: SODIUM CHLORIDE
     Indication: Hypercalcaemia
     Dosage: UNK
     Route: 042
     Dates: start: 202109, end: 202109
  44. HYDROMORPHONE HYDROCHLORIDE [Concomitant]
     Active Substance: HYDROMORPHONE HYDROCHLORIDE
     Indication: Pain
     Dosage: PRN (AS NEEDED)
     Route: 048
     Dates: start: 202109, end: 202109
  45. HYDROMORPHONE HYDROCHLORIDE [Concomitant]
     Active Substance: HYDROMORPHONE HYDROCHLORIDE
     Dosage: 2 G 0.5 DAY 1604 23 HYDAL ADVERSE EVENT 007 } UN SEP 2021 } PAIN UN SEP 2021 0 0 1 1.30 MG
     Route: 048
     Dates: start: 202109, end: 202109
  46. DIPRODERM [BETAMETHASONE DIPROPIONATE] [Concomitant]
     Indication: Rash
     Dosage: 0.5 DAY
     Route: 061
     Dates: start: 20180621
  47. ENOXAPARIN SODIUM [Concomitant]
     Active Substance: ENOXAPARIN SODIUM
     Dosage: 4000 IU
     Route: 058
     Dates: start: 202109, end: 202109
  48. LASIX [Concomitant]
     Active Substance: FUROSEMIDE
     Indication: Hypercalcaemia
     Dosage: UNK
     Route: 042
     Dates: start: 202109, end: 202109

REACTIONS (2)
  - Osteonecrosis of jaw [Recovered/Resolved]
  - Off label use [Unknown]

NARRATIVE: CASE EVENT DATE: 20201215
